FAERS Safety Report 9482060 (Version 2)
Quarter: 2013Q3

REPORT INFORMATION
  Report Type: Spontaneous
  Country: DE (occurrence: DE)
  Receive Date: 20130828
  Receipt Date: 20130828
  Transmission Date: 20140515
  Serious: Yes (Death, Hospitalization)
  Sender: FDA-Public Use
  Company Number: DE-JNJFOC-20130808739

PATIENT
  Age: 88 Year
  Sex: Male

DRUGS (13)
  1. XARELTO [Suspect]
     Indication: ATRIAL FIBRILLATION
     Route: 048
     Dates: start: 20130603, end: 20130607
  2. XARELTO [Suspect]
     Indication: CEREBROVASCULAR ACCIDENT PROPHYLAXIS
     Route: 048
     Dates: start: 20130603, end: 20130607
  3. NITROLINGUAL [Concomitant]
     Indication: CORONARY ARTERY DISEASE
     Route: 048
     Dates: start: 20130120
  4. NITROLINGUAL [Concomitant]
     Indication: HYPERTENSION
     Route: 048
     Dates: start: 20130120
  5. SIMVASTATIN [Concomitant]
     Route: 065
  6. TOREM [Concomitant]
     Indication: CORONARY ARTERY DISEASE
     Route: 065
     Dates: start: 20130120
  7. TOREM [Concomitant]
     Indication: HYPERTENSION
     Route: 065
     Dates: start: 20130120
  8. TAMSULOSIN [Concomitant]
     Route: 065
  9. QUERTO [Concomitant]
     Indication: CORONARY ARTERY DISEASE
     Route: 065
     Dates: start: 20120120
  10. QUERTO [Concomitant]
     Indication: HYPERTENSION
     Route: 065
     Dates: start: 20120120
  11. RAMIPRIL [Concomitant]
     Indication: CORONARY ARTERY DISEASE
     Route: 065
     Dates: start: 20120120
  12. RAMIPRIL [Concomitant]
     Indication: HYPERTENSION
     Route: 065
     Dates: start: 20120120
  13. PANTOZOL [Concomitant]
     Route: 065
     Dates: start: 20130607

REACTIONS (7)
  - Pneumonia aspiration [Fatal]
  - Urinary bladder haemorrhage [Unknown]
  - Upper gastrointestinal haemorrhage [Unknown]
  - Haemorrhagic anaemia [Unknown]
  - Bladder tamponade [Unknown]
  - Contusion [Unknown]
  - General physical health deterioration [Unknown]
